FAERS Safety Report 9661354 (Version 1)
Quarter: 2013Q4

REPORT INFORMATION
  Report Type: Spontaneous
  Country: JP (occurrence: JP)
  Receive Date: 20131031
  Receipt Date: 20131031
  Transmission Date: 20140711
  Serious: Yes (Hospitalization)
  Sender: FDA-Public Use
  Company Number: JP-GILEAD-2013-0086618

PATIENT
  Age: 30 Year
  Sex: Male

DRUGS (6)
  1. AMBRISENTAN [Suspect]
     Indication: PRODUCT USED FOR UNKNOWN INDICATION
     Route: 048
  2. WARFARIN [Suspect]
     Indication: PRODUCT USED FOR UNKNOWN INDICATION
     Route: 048
  3. BAYASPIRIN [Suspect]
     Indication: PRODUCT USED FOR UNKNOWN INDICATION
     Route: 048
  4. TRACLEER                           /01587701/ [Concomitant]
     Route: 048
  5. ADCIRCA [Concomitant]
     Route: 048
  6. CARELOAD [Concomitant]
     Route: 048

REACTIONS (1)
  - Haemoptysis [Unknown]
